FAERS Safety Report 9325686 (Version 1)
Quarter: 2013Q2

REPORT INFORMATION
  Report Type: Spontaneous
  Country: US (occurrence: None)
  Receive Date: 20130531
  Receipt Date: 20130531
  Transmission Date: 20140414
  Serious: No
  Sender: FDA-Public Use
  Company Number: None

PATIENT
  Age: 45 Year
  Sex: Male
  Weight: 113.4 kg

DRUGS (2)
  1. PROZAC [Suspect]
     Dates: end: 20130326
  2. PROZAC [Suspect]
     Dosage: 2 DAY
     Dates: start: 20130326, end: 20130329

REACTIONS (3)
  - Dyspepsia [None]
  - Anxiety [None]
  - Feeling of despair [None]
